FAERS Safety Report 4426382-2 (Version None)
Quarter: 2004Q3

REPORT INFORMATION
  Report Type: 
  Country: None (occurrence: None)
  Receive Date: 20040811
  Receipt Date: 20040722
  Transmission Date: 20050211
  Serious: Yes (Hospitalization)
  Sender: FDA-Public Use
  Company Number: FR_040704488

PATIENT
  Age: 76 Year
  Sex: Male
  Weight: 64 kg

DRUGS (8)
  1. GEMZAR [Suspect]
     Indication: PANCREATIC CARCINOMA
     Dates: start: 20040205
  2. LYSANXIA (PRAZEPAM) [Concomitant]
  3. PRAXILENE (NAFTIDROFURYL OXALATE) [Concomitant]
  4. FRAXIPARINE (NADROPARIN CALCIUM) [Concomitant]
  5. FLECAINE (FLECAINIDE ACETTE) [Concomitant]
  6. PAROXETINE HCL [Concomitant]
  7. DUROGESIC (FENTANYL) [Concomitant]
  8. OMEPRAZOLE [Concomitant]

REACTIONS (6)
  - DIARRHOEA [None]
  - EMBOLISM [None]
  - ISCHAEMIC STROKE [None]
  - ORTHOSTATIC HYPOTENSION [None]
  - PYREXIA [None]
  - THROMBOCYTHAEMIA [None]
